FAERS Safety Report 25528670 (Version 1)
Quarter: 2025Q3

REPORT INFORMATION
  Report Type: Report from Study
  Country: EU (occurrence: EU)
  Receive Date: 20250708
  Receipt Date: 20250708
  Transmission Date: 20251021
  Serious: Yes (Death, Other)
  Sender: RANBAXY
  Company Number: EU-SUN PHARMACEUTICAL INDUSTRIES INC-2025R1-515768

PATIENT
  Sex: Male
  Weight: 0.82 kg

DRUGS (2)
  1. DOXORUBICIN [Suspect]
     Active Substance: DOXORUBICIN
     Indication: Osteosarcoma
     Route: 064
  2. IFOSFAMIDE [Suspect]
     Active Substance: IFOSFAMIDE
     Indication: Osteosarcoma
     Route: 064

REACTIONS (11)
  - Foetal exposure during pregnancy [Fatal]
  - Premature baby [Fatal]
  - Low birth weight baby [Fatal]
  - Anuria [Fatal]
  - Pulmonary hypoplasia [Fatal]
  - Leukopenia [Fatal]
  - Anaemia [Fatal]
  - Oligohydramnios [Fatal]
  - Acute kidney injury [Fatal]
  - Cardiac failure [Fatal]
  - Foetal growth restriction [Fatal]
